FAERS Safety Report 4418422-1 (Version None)
Quarter: 2004Q3

REPORT INFORMATION
  Report Type: 
  Country: None (occurrence: None)
  Receive Date: 20040809
  Receipt Date: 20040421
  Transmission Date: 20050211
  Serious: No
  Sender: FDA-Public Use
  Company Number: US-GLAXOSMITHKLINE-A0507903A

PATIENT
  Age: 32 Year
  Sex: Female

DRUGS (1)
  1. PAXIL CR [Suspect]
     Indication: POST-TRAUMATIC STRESS DISORDER
     Dosage: 12.5MG PER DAY
     Route: 048
     Dates: start: 20030301

REACTIONS (3)
  - ABNORMAL DREAMS [None]
  - MENSTRUAL DISORDER [None]
  - MYDRIASIS [None]
